FAERS Safety Report 6750323-6 (Version None)
Quarter: 2010Q2

REPORT INFORMATION
  Report Type: 
  Country: None (occurrence: None)
  Receive Date: 20100527
  Receipt Date: 20100522
  Transmission Date: 20101027
  Serious: Yes (Hospitalization)
  Sender: FDA-Public Use
  Company Number: CIO10003250

PATIENT
  Sex: Female

DRUGS (2)
  1. SINEX VAPOSPRAY [Suspect]
     Indication: NASOPHARYNGITIS
     Dosage: 2 DAYS, INTRANASAL
     Route: 045
     Dates: start: 20100226, end: 20100228
  2. SINEX VAPOSPRAY [Suspect]
     Indication: NASOPHARYNGITIS
     Dosage: 2 DAYS, INTRANASAL
     Route: 045
     Dates: start: 20100301, end: 20100302

REACTIONS (2)
  - APHONIA [None]
  - CEREBROVASCULAR ACCIDENT [None]
